FAERS Safety Report 8534356-5 (Version None)
Quarter: 2012Q3

REPORT INFORMATION
  Report Type: 
  Country: None (occurrence: None)
  Receive Date: 20120724
  Receipt Date: 20120718
  Transmission Date: 20120928
  Serious: Yes (Congenital Anomaly, Other)
  Sender: FDA-Public Use
  Company Number: PHHY2012DE061745

PATIENT
  Sex: Male

DRUGS (2)
  1. MITOXANTRONE [Suspect]
     Route: 064
  2. ONDANSETRON [Suspect]
     Route: 064

REACTIONS (7)
  - PIERRE ROBIN SYNDROME [None]
  - CLEFT PALATE [None]
  - MICROGNATHIA [None]
  - UPPER AIRWAY OBSTRUCTION [None]
  - FOETAL EXPOSURE DURING PREGNANCY [None]
  - GLOSSOPTOSIS [None]
  - RETROGNATHIA [None]
